FAERS Safety Report 11722437 (Version 1)
Quarter: 2015Q4

REPORT INFORMATION
  Report Type: Report from Study
  Country: US (occurrence: US)
  Receive Date: 20151111
  Receipt Date: 20151111
  Transmission Date: 20160304
  Serious: Yes (Other)
  Sender: FDA-Public Use
  Company Number: PHEH2015US022446

PATIENT
  Sex: Female

DRUGS (3)
  1. SPRYCEL [Suspect]
     Active Substance: DASATINIB
     Indication: PRODUCT USED FOR UNKNOWN INDICATION
     Dosage: 100 MG, UNK
     Route: 065
  2. SPRYCEL [Suspect]
     Active Substance: DASATINIB
     Dosage: 140 MG, UNK
     Route: 065
  3. GLEEVEC [Suspect]
     Active Substance: IMATINIB MESYLATE
     Indication: PRODUCT USED FOR UNKNOWN INDICATION
     Dosage: 400 MG, UNK
     Route: 065

REACTIONS (10)
  - Pleural effusion [Unknown]
  - Thyroid disorder [Unknown]
  - Pruritus generalised [Unknown]
  - Muscle spasms [Unknown]
  - Leukaemia recurrent [Unknown]
  - Swelling face [Unknown]
  - Drug ineffective [Unknown]
  - Pulmonary oedema [Unknown]
  - Rash [Unknown]
  - Lip swelling [Unknown]
